FAERS Safety Report 9258205 (Version 1)
Quarter: 2013Q1

REPORT INFORMATION
  Report Type: Spontaneous
  Country: US (occurrence: None)
  Receive Date: 20121212
  Receipt Date: 20121212
  Transmission Date: 20140127
  Serious: No
  Sender: FDA-Public Use
  Company Number: 1210USA001635

PATIENT
  Sex: Male

DRUGS (3)
  1. PEG-INTRON (PEGINTERFERON ALFA-2B) POWDER FOR INJECTION, 150MICROGRAM [Suspect]
     Indication: HEPATITIS C
     Dates: start: 20120928
  2. REBETOL (RIBAVIRIN) CAPSULE [Suspect]
     Indication: HEPATITIS C
     Route: 048
     Dates: start: 20120928
  3. VICTRELIS (BOCEPREVIR) CAPSULE [Suspect]
     Indication: HEPATITIS C
     Dates: start: 20121027

REACTIONS (7)
  - Chromaturia [None]
  - Pain [None]
  - Fatigue [None]
  - Influenza like illness [None]
  - Product taste abnormal [None]
  - Weight decreased [None]
  - Back pain [None]
